FAERS Safety Report 24579968 (Version 1)
Quarter: 2024Q4

REPORT INFORMATION
  Report Type: Spontaneous
  Country: US (occurrence: None)
  Receive Date: 20241104
  Receipt Date: 20241104
  Transmission Date: 20250114
  Serious: Yes (Hospitalization)
  Sender: Public
  Company Number: None

PATIENT
  Age: 59 Year
  Sex: Male
  Weight: 79 kg

DRUGS (2)
  1. METRONIDAZOLE [Suspect]
     Active Substance: METRONIDAZOLE
     Indication: Bacteraemia
     Dosage: 500.00 MG TWICE A DAY ORAL?
     Route: 048
     Dates: start: 20240707, end: 20240712
  2. METRONIDAZOLE [Suspect]
     Active Substance: METRONIDAZOLE
     Indication: Necrotising fasciitis

REACTIONS (1)
  - Stomatitis [None]

NARRATIVE: CASE EVENT DATE: 20240814
